FAERS Safety Report 8192787-X (Version None)
Quarter: 2012Q1

REPORT INFORMATION
  Report Type: 
  Country: None (occurrence: None)
  Receive Date: 20120308
  Receipt Date: 20120304
  Transmission Date: 20120608
  Serious: No
  Sender: FDA-Public Use
  Company Number: US-PFIZER INC-2012057743

PATIENT
  Sex: Female

DRUGS (1)
  1. PRISTIQ [Suspect]
     Indication: ANXIETY
     Dosage: UNK
     Dates: start: 20120301

REACTIONS (4)
  - CONFUSIONAL STATE [None]
  - RESTLESSNESS [None]
  - DISCOMFORT [None]
  - ANXIETY [None]
